FAERS Safety Report 7369141-3 (Version None)
Quarter: 2011Q1

REPORT INFORMATION
  Report Type: 
  Country: None (occurrence: None)
  Receive Date: 20110323
  Receipt Date: 20110319
  Transmission Date: 20110831
  Serious: No
  Sender: FDA-Public Use
  Company Number: US-PFIZER INC-2011060583

PATIENT
  Sex: Male

DRUGS (3)
  1. HYDROXYZINE [Concomitant]
     Indication: ANXIETY
     Dosage: UNK
  2. GABAPENTIN [Suspect]
     Indication: ANXIETY
     Dosage: 300 MG, 2X/DAY
     Dates: start: 20101130
  3. DEXTROAMPHETAMINE [Suspect]
     Indication: ATTENTION DEFICIT/HYPERACTIVITY DISORDER
     Dosage: 20 MG, 1X/DAY
     Dates: start: 20110307

REACTIONS (2)
  - INSOMNIA [None]
  - DRUG INEFFECTIVE [None]
